FAERS Safety Report 12637419 (Version 2)
Quarter: 2016Q3

REPORT INFORMATION
  Report Type: Spontaneous
  Country: US (occurrence: US)
  Receive Date: 20160809
  Receipt Date: 20160822
  Transmission Date: 20161109
  Serious: No
  Sender: FDA-Public Use
  Company Number: US-BEH-2016061391

PATIENT
  Sex: Female
  Weight: 81.65 kg

DRUGS (30)
  1. PRIVIGEN [Suspect]
     Active Substance: HUMAN IMMUNOGLOBULIN G
     Dosage: UNK
     Route: 042
  2. PRIVIGEN [Suspect]
     Active Substance: HUMAN IMMUNOGLOBULIN G
     Dosage: UNK
     Route: 042
  3. CENTRUM SILVER WOMEN [Concomitant]
  4. SYSTANE ULTRA [Concomitant]
     Active Substance: POLYETHYLENE GLYCOL 400\PROPYLENE GLYCOL
  5. SODIUM CHLORIDE. [Concomitant]
     Active Substance: SODIUM CHLORIDE
  6. SINGULAIR [Concomitant]
     Active Substance: MONTELUKAST SODIUM
  7. TIMOLOL. [Concomitant]
     Active Substance: TIMOLOL
  8. ZETIA [Concomitant]
     Active Substance: EZETIMIBE
  9. PRIVIGEN [Suspect]
     Active Substance: HUMAN IMMUNOGLOBULIN G
     Indication: IMMUNODEFICIENCY COMMON VARIABLE
     Route: 042
  10. DIPHENHYDRAMINE. [Concomitant]
     Active Substance: DIPHENHYDRAMINE
  11. ZADITOR [Concomitant]
     Active Substance: KETOTIFEN FUMARATE
  12. NEXIUM [Concomitant]
     Active Substance: ESOMEPRAZOLE MAGNESIUM
  13. CLARITIN [Concomitant]
     Active Substance: LORATADINE
  14. REGLAN [Concomitant]
     Active Substance: METOCLOPRAMIDE HYDROCHLORIDE
  15. TOPROL XL [Concomitant]
     Active Substance: METOPROLOL SUCCINATE
  16. MULTIVITAMINS [Concomitant]
     Active Substance: VITAMINS
  17. PROZAC [Concomitant]
     Active Substance: FLUOXETINE HYDROCHLORIDE
  18. EPIPEN [Concomitant]
     Active Substance: EPINEPHRINE
  19. TRILIPIX [Concomitant]
     Active Substance: FENOFIBRIC ACID
  20. FELODIPINE. [Concomitant]
     Active Substance: FELODIPINE
  21. VITAMIN D3 [Concomitant]
     Active Substance: CHOLECALCIFEROL
  22. PREDNISOLONE. [Concomitant]
     Active Substance: PREDNISOLONE
  23. ALBUTEROL. [Concomitant]
     Active Substance: ALBUTEROL
  24. PRIVIGEN [Suspect]
     Active Substance: HUMAN IMMUNOGLOBULIN G
     Dosage: 35 G, QMT
     Route: 042
     Dates: start: 20150721, end: 20160404
  25. NORCO [Concomitant]
     Active Substance: ACETAMINOPHEN\HYDROCODONE BITARTRATE
  26. RESTASIS [Concomitant]
     Active Substance: CYCLOSPORINE
  27. NITROSTAT [Concomitant]
     Active Substance: NITROGLYCERIN
  28. LOSARTAN POTASSIUM. [Concomitant]
     Active Substance: LOSARTAN POTASSIUM
  29. XANAX [Concomitant]
     Active Substance: ALPRAZOLAM
  30. PROAIR HFA [Concomitant]
     Active Substance: ALBUTEROL SULFATE

REACTIONS (1)
  - Bronchitis [Unknown]
